FAERS Safety Report 7263044-0 (Version None)
Quarter: 2011Q1

REPORT INFORMATION
  Report Type: 
  Country: None (occurrence: None)
  Receive Date: 20110130
  Receipt Date: 20100921
  Transmission Date: 20110831
  Serious: No
  Sender: FDA-Public Use
  Company Number: US-ABBOTT-10P-163-0672995-00

PATIENT
  Sex: Female
  Weight: 79.45 kg

DRUGS (3)
  1. HUMIRA [Suspect]
     Indication: CROHN'S DISEASE
     Dosage: LOADING DOSE
     Route: 058
     Dates: start: 20100919, end: 20100919
  2. PREDNISONE [Concomitant]
     Indication: CROHN'S DISEASE
     Dosage: TAPER
  3. PURINETHOL [Concomitant]
     Indication: CROHN'S DISEASE

REACTIONS (4)
  - HEART RATE INCREASED [None]
  - FLUSHING [None]
  - DIZZINESS [None]
  - DYSPNOEA [None]
